FAERS Safety Report 11565814 (Version 2)
Quarter: 2015Q4

REPORT INFORMATION
  Report Type: Spontaneous
  Country: US (occurrence: US)
  Receive Date: 20150916
  Receipt Date: 20151104
  Transmission Date: 20160304
  Serious: No
  Sender: FDA-Public Use
  Company Number: US-ELI_LILLY_AND_COMPANY-US200905001975

PATIENT
  Sex: Female

DRUGS (5)
  1. ADVIL [Concomitant]
     Active Substance: IBUPROFEN
  2. VITAMIN D [Concomitant]
     Active Substance: CHOLECALCIFEROL
  3. FORTEO [Suspect]
     Active Substance: TERIPARATIDE
     Indication: OSTEOPOROSIS
     Dosage: 20 UG, QD
     Dates: start: 2006, end: 2008
  4. BONIVA [Concomitant]
     Active Substance: IBANDRONATE SODIUM
  5. VITAMIN C [Concomitant]
     Active Substance: ASCORBIC ACID

REACTIONS (5)
  - Iliotibial band syndrome [Unknown]
  - Back pain [Unknown]
  - Spinal column stenosis [Unknown]
  - Stress fracture [Unknown]
  - Pain in extremity [Unknown]

NARRATIVE: CASE EVENT DATE: 2008
